FAERS Safety Report 5313205-2 (Version None)
Quarter: 2007Q2

REPORT INFORMATION
  Report Type: 
  Country: None (occurrence: None)
  Receive Date: 20070424
  Receipt Date: 20070410
  Transmission Date: 20071010
  Serious: Yes (Death)
  Sender: FDA-Public Use
  Company Number: 2006JP005489

PATIENT
  Age: 49 Year
  Sex: Female
  Weight: 49.6 kg

DRUGS (8)
  1. FUNGUARD (MICAFUNGIN INJECTION) [Suspect]
     Indication: FUNGAL INFECTION
     Dosage: 150 MG, /D, IV DRIP
     Route: 042
     Dates: start: 20060424, end: 20060427
  2. PROGRAF [Concomitant]
  3. DIFLUCAN [Concomitant]
  4. MEROPEN (MEROPENEM) [Concomitant]
  5. VANCOMYCIN HYDROCHLORIDE [Concomitant]
  6. OMEGACIN (BIAPENEM) [Concomitant]
  7. HABEKACIN (ARBEKACIN) [Concomitant]
  8. TARGOCID [Concomitant]

REACTIONS (20)
  - ATRIAL FIBRILLATION [None]
  - BLOOD PRESSURE DECREASED [None]
  - BONE MARROW FAILURE [None]
  - ENCEPHALOPATHY [None]
  - HISTIOCYTOSIS HAEMATOPHAGIC [None]
  - INFECTION [None]
  - LEUKOPENIA [None]
  - MACROPHAGES DECREASED [None]
  - MACROPHAGES INCREASED [None]
  - MUSCULOSKELETAL CHEST PAIN [None]
  - OXYGEN SATURATION DECREASED [None]
  - PNEUMONIA [None]
  - PROTEIN C DECREASED [None]
  - PYREXIA [None]
  - RENAL IMPAIRMENT [None]
  - SEPTIC SHOCK [None]
  - SERUM FERRITIN INCREASED [None]
  - SWELLING [None]
  - TACHYCARDIA [None]
  - TRANSPLANT REJECTION [None]
